FAERS Safety Report 4840348-X (Version None)
Quarter: 2005Q4

REPORT INFORMATION
  Report Type: 
  Country: None (occurrence: None)
  Receive Date: 20051025
  Receipt Date: 20050128
  Transmission Date: 20060501
  Serious: No
  Sender: FDA-Public Use
  Company Number: 2005-00243

PATIENT
  Age: 20 Year
  Sex: Female

DRUGS (4)
  1. MENOMUNE-A [Suspect]
     Indication: IMMUNISATION
     Dosage: S.C.
     Route: 058
     Dates: start: 20050126
  2. TUBERSOL [Suspect]
     Indication: IMMUNISATION
     Dates: start: 20050126
  3. ORTHO PATCH [Concomitant]
  4. PREVACID [Concomitant]

REACTIONS (4)
  - JOINT SWELLING [None]
  - OEDEMA PERIPHERAL [None]
  - SWELLING FACE [None]
  - URTICARIA [None]
